FAERS Safety Report 13172493 (Version 2)
Quarter: 2017Q1

REPORT INFORMATION
  Report Type: Report from Study
  Country: US (occurrence: US)
  Receive Date: 20170201
  Receipt Date: 20170207
  Transmission Date: 20170428
  Serious: Yes (Death)
  Sender: FDA-Public Use
  Company Number: US-ROCHE-1885090

PATIENT

DRUGS (3)
  1. ZANAMIVIR [Suspect]
     Active Substance: ZANAMIVIR
     Indication: INFLUENZA
     Route: 042
  2. ZANAMIVIR [Suspect]
     Active Substance: ZANAMIVIR
     Route: 042
  3. OSELTAMIVIR [Suspect]
     Active Substance: OSELTAMIVIR
     Indication: INFLUENZA
     Route: 048

REACTIONS (13)
  - Cardiac failure congestive [Fatal]
  - Cardiogenic shock [Fatal]
  - Cardiac arrest [Fatal]
  - Respiratory failure [Fatal]
  - Pneumonia [Fatal]
  - Septic shock [Fatal]
  - Multiple organ dysfunction syndrome [Fatal]
  - Chronic obstructive pulmonary disease [Fatal]
  - Acute respiratory failure [Fatal]
  - Sepsis [Fatal]
  - Distributive shock [Fatal]
  - Pulmonary haemorrhage [Fatal]
  - Disseminated intravascular coagulation [Fatal]
